FAERS Safety Report 9912793 (Version 1)
Quarter: 2014Q1

REPORT INFORMATION
  Report Type: Spontaneous
  Country: US (occurrence: US)
  Receive Date: 20140220
  Receipt Date: 20140220
  Transmission Date: 20141002
  Serious: No
  Sender: FDA-Public Use
  Company Number: US-PFIZER INC-2014044631

PATIENT
  Age: 67 Year
  Sex: Female
  Weight: 59.9 kg

DRUGS (6)
  1. CORTISONE [Suspect]
     Indication: RASH
     Dosage: UNK
     Dates: start: 201401
  2. CORTISONE [Interacting]
     Indication: BLISTER
  3. NEOSPORIN [Interacting]
     Indication: RASH
     Dosage: UNK
     Dates: start: 201401
  4. NEOSPORIN [Interacting]
     Indication: BLISTER
  5. ELAVIL [Concomitant]
     Indication: CYSTITIS INTERSTITIAL
     Dosage: 12.5 MG, 1X/DAY (DAILY AT BEDTIME )
  6. KLONOPIN [Concomitant]
     Indication: SLEEP DISORDER
     Dosage: CUTTING 1MG TABLET IN FOUR QUARTERS AND TAKING ONE QUARTER DAILY

REACTIONS (2)
  - Drug interaction [Unknown]
  - Drug ineffective [Unknown]
